FAERS Safety Report 8499052 (Version 3)
Quarter: 2012Q4

REPORT INFORMATION
  Report Type: 
  Country: US (occurrence: US)
  Receive Date: 20120409
  Receipt Date: 20120903
  Transmission Date: 20130627
  Serious: Yes (Hospitalization)
  Sender: FDA-Public Use
  Company Number: US-BAYER-2012-031552

PATIENT
  Age: 40 Year
  Sex: Female
  Weight: 56.69 kg

DRUGS (5)
  1. YAZ [Suspect]
     Indication: CONTRACEPTION
     Dosage: UNK
     Dates: start: 200505, end: 201003
  2. BENTYL [Concomitant]
     Dosage: 10 mg, TID prn (as needed)
     Route: 048
     Dates: start: 20100209
  3. MVI [Concomitant]
     Dosage: UNK
     Dates: start: 20100218
  4. KLOR-CON [Concomitant]
     Dosage: 20 mEq, QD
     Dates: start: 20100218, end: 20100222
  5. OMEPRAZOLE [Concomitant]
     Dosage: 20 mg, QD
     Dates: start: 20100209, end: 20100312

REACTIONS (6)
  - Gallbladder injury [None]
  - Pain [None]
  - Haemangioma of liver [None]
  - Blood potassium abnormal [None]
  - Emotional distress [None]
  - Cholecystitis chronic [None]
